FAERS Safety Report 5390551-8 (Version None)
Quarter: 2007Q3

REPORT INFORMATION
  Report Type: 
  Country: None (occurrence: None)
  Receive Date: 20070718
  Receipt Date: 20070707
  Transmission Date: 20080115
  Serious: Yes (Other)
  Sender: FDA-Public Use
  Company Number: US-PFIZER INC-2007057039

PATIENT
  Sex: Male
  Weight: 72.6 kg

DRUGS (5)
  1. CHANTIX [Suspect]
     Indication: EX-SMOKER
     Dates: start: 20070627, end: 20070704
  2. CATAPRES [Concomitant]
  3. TAMSULOSIN HCL [Concomitant]
  4. LORTAB [Concomitant]
  5. ALL OTHER THERAPEUTIC PRODUCTS [Concomitant]

REACTIONS (7)
  - BALANCE DISORDER [None]
  - BRADYCARDIA [None]
  - DYSPHAGIA [None]
  - FALL [None]
  - GAIT DISTURBANCE [None]
  - HYPOTENSION [None]
  - SENSORY DISTURBANCE [None]
